FAERS Safety Report 15287183 (Version 1)
Quarter: 2018Q4

REPORT INFORMATION
  Report Type: Spontaneous
  Country: US (occurrence: US)
  Receive Date: 20180817
  Receipt Date: 20180817
  Transmission Date: 20190204
  Serious: Yes (Hospitalization, Other)
  Sender: FDA-Public Use
  Company Number: US-MACLEODS PHARMACEUTICALS US LTD-MAC2018016331

PATIENT

DRUGS (5)
  1. CLOBETASOL [Interacting]
     Active Substance: CLOBETASOL
     Indication: ECZEMA
     Dosage: UNK UNK,CREAM S.O.S. AS NECESSARY, 0.05%
     Route: 061
  2. FLUOCINONIDE. [Interacting]
     Active Substance: FLUOCINONIDE
     Indication: ECZEMA
     Dosage: UNK UNK, BID, 0.05%
     Route: 061
  3. ECONAZOLE. [Interacting]
     Active Substance: ECONAZOLE NITRATE
     Indication: ECZEMA
     Dosage: UNK
     Route: 061
  4. TRIAMCINOLONE ACETONIDE  0.1% [Suspect]
     Active Substance: TRIAMCINOLONE ACETONIDE
     Indication: ECZEMA
     Dosage: UNK UNK, BID, OINTMENT
     Route: 061
  5. KETONAZOLE [Interacting]
     Active Substance: KETOCONAZOLE
     Indication: ECZEMA
     Dosage: UNK
     Route: 061

REACTIONS (4)
  - Drug interaction [Recovering/Resolving]
  - Hypothalamic pituitary adrenal axis suppression [Recovering/Resolving]
  - Adrenal insufficiency [Recovering/Resolving]
  - Withdrawal syndrome [Recovering/Resolving]
